FAERS Safety Report 9919226 (Version 1)
Quarter: 2014Q1

REPORT INFORMATION
  Report Type: Report from Study
  Country: CA (occurrence: CA)
  Receive Date: 20140224
  Receipt Date: 20140224
  Transmission Date: 20141002
  Serious: Yes (Hospitalization)
  Sender: FDA-Public Use
  Company Number: CA-JNJFOC-20140213521

PATIENT
  Age: 90 Year
  Sex: Male
  Weight: 73.5 kg

DRUGS (1)
  1. REMICADE [Suspect]
     Indication: RHEUMATOID ARTHRITIS
     Dosage: PATIENT HAD RECEIVED 106 INFLIXIMAB INFUSIONS
     Route: 042

REACTIONS (1)
  - Peripheral vascular disorder [Unknown]
